FAERS Safety Report 7652545-9 (Version None)
Quarter: 2011Q3

REPORT INFORMATION
  Report Type: 
  Country: None (occurrence: None)
  Receive Date: 20110728
  Receipt Date: 20110718
  Transmission Date: 20111222
  Serious: Yes (Death, Hospitalization)
  Sender: FDA-Public Use
  Company Number: 120043

PATIENT
  Age: 77 Year
  Sex: Male

DRUGS (1)
  1. RIFAMPIN [Suspect]
     Indication: POSTOPERATIVE WOUND INFECTION

REACTIONS (2)
  - MULTI-ORGAN FAILURE [None]
  - EOSINOPHILIC PNEUMONIA [None]
